FAERS Safety Report 13843653 (Version 1)
Quarter: 2017Q3

REPORT INFORMATION
  Report Type: Spontaneous
  Country: RU (occurrence: RU)
  Receive Date: 20170808
  Receipt Date: 20170808
  Transmission Date: 20171127
  Serious: Yes (Other)
  Sender: FDA-Public Use
  Company Number: RU-JNJFOC-20170402898

PATIENT
  Age: 45 Year
  Sex: Male

DRUGS (5)
  1. DOXORUBICIN HYDROCHLORIDE. [Suspect]
     Active Substance: DOXORUBICIN HYDROCHLORIDE
     Indication: IRIS MELANOMA
     Dosage: 30-50 MG
     Route: 013
  2. DACARBAZINE. [Suspect]
     Active Substance: DACARBAZINE
     Indication: IRIS MELANOMA
     Dosage: 200-400 MG
     Route: 065
  3. CARBOPLATIN. [Suspect]
     Active Substance: CARBOPLATIN
     Indication: IRIS MELANOMA
     Dosage: 150-450 MG
     Route: 065
  4. MITOMYCIN C [Suspect]
     Active Substance: MITOMYCIN
     Indication: IRIS MELANOMA
     Dosage: 5-10 MG
     Route: 065
  5. MUSTOPHORAN [Suspect]
     Active Substance: FOTEMUSTINE
     Indication: IRIS MELANOMA
     Dosage: 360-624 MG
     Route: 065

REACTIONS (4)
  - Product use in unapproved indication [Unknown]
  - Off label use [Unknown]
  - Acute hepatic failure [Recovered/Resolved]
  - Product use issue [Unknown]
